FAERS Safety Report 18937912 (Version 1)
Quarter: 2021Q1

REPORT INFORMATION
  Report Type: Spontaneous
  Country: CA (occurrence: CA)
  Receive Date: 20210224
  Receipt Date: 20210224
  Transmission Date: 20210420
  Serious: Yes (Death, Hospitalization)
  Sender: FDA-Public Use
  Company Number: CA-PFIZER INC-2021175282

PATIENT
  Age: 62 Year
  Sex: Male
  Weight: 110 kg

DRUGS (31)
  1. ACETAMINOPHEN. [Concomitant]
     Active Substance: ACETAMINOPHEN
  2. CODEINE [Concomitant]
     Active Substance: CODEINE
  3. PIOGLITAZONE. [Concomitant]
     Active Substance: PIOGLITAZONE
  4. QUETIAPINE. [Concomitant]
     Active Substance: QUETIAPINE
  5. ROSUVASTATIN. [Concomitant]
     Active Substance: ROSUVASTATIN
  6. VORAXAZE [Concomitant]
     Active Substance: GLUCARPIDASE
  7. METHOTREXATE SODIUM. [Suspect]
     Active Substance: METHOTREXATE SODIUM
     Indication: NON-HODGKIN^S LYMPHOMA
     Dosage: 6600 MG
  8. ENOXAPARIN [Concomitant]
     Active Substance: ENOXAPARIN
  9. HALOPERIDOL. [Concomitant]
     Active Substance: HALOPERIDOL
  10. METOCLOPRAMIDE. [Concomitant]
     Active Substance: METOCLOPRAMIDE
  11. ONDANSETRON [Concomitant]
     Active Substance: ONDANSETRON
  12. POLYETHYLENE GLYCOL [MACROGOL] [Concomitant]
     Active Substance: POLYETHYLENE GLYCOLS
  13. POTASSIUM [Concomitant]
     Active Substance: POTASSIUM
  14. DEXAMETHASONE. [Concomitant]
     Active Substance: DEXAMETHASONE
     Route: 065
  15. PHOSPHATE [PHOSPHORIC ACID SODIUM] [Concomitant]
     Active Substance: SODIUM PHOSPHATE
  16. THIAMINE. [Concomitant]
     Active Substance: THIAMINE
  17. METHOTREXATE SODIUM. [Suspect]
     Active Substance: METHOTREXATE SODIUM
     Indication: CENTRAL NERVOUS SYSTEM INJURY
  18. ACETYLSALICYLIC ACID [Concomitant]
     Active Substance: ASPIRIN
  19. AMLODIPINE [Concomitant]
     Active Substance: AMLODIPINE BESYLATE
  20. CELECOXIB. [Concomitant]
     Active Substance: CELECOXIB
  21. INSULIN [Concomitant]
     Active Substance: INSULIN NOS
  22. MEROPENEM. [Concomitant]
     Active Substance: MEROPENEM
  23. METOPROLOL. [Concomitant]
     Active Substance: METOPROLOL
     Route: 065
  24. SODIUM BICARBONATE. [Concomitant]
     Active Substance: SODIUM BICARBONATE
  25. TRIMETHOPRIM SULFAMETHOXAZOLE [Concomitant]
     Active Substance: SULFAMETHOXAZOLE\TRIMETHOPRIM
  26. JANUMET [Concomitant]
     Active Substance: METFORMIN HYDROCHLORIDE\SITAGLIPTIN PHOSPHATE
     Route: 065
  27. LORAZEPAM. [Concomitant]
     Active Substance: LORAZEPAM
  28. POSANOL [Concomitant]
     Active Substance: POSACONAZOLE
  29. MAGNESIUM [Concomitant]
     Active Substance: MAGNESIUM
  30. FUROSEMIDE. [Concomitant]
     Active Substance: FUROSEMIDE
  31. LEUCOVORIN [FOLINIC ACID] [Concomitant]
     Active Substance: LEUCOVORIN

REACTIONS (7)
  - Non-Hodgkin^s lymphoma [Fatal]
  - Staphylococcal bacteraemia [Fatal]
  - Staphylococcal infection [Fatal]
  - Encephalopathy [Fatal]
  - Renal failure [Fatal]
  - Toxicity to various agents [Fatal]
  - Disease progression [Fatal]
